FAERS Safety Report 11216360 (Version 1)
Quarter: 2015Q2

REPORT INFORMATION
  Report Type: Spontaneous
  Country: US (occurrence: None)
  Receive Date: 20150623
  Receipt Date: 20150623
  Transmission Date: 20150821
  Serious: Yes (Disabling)
  Sender: FDA-Public Use
  Company Number: None

PATIENT
  Age: 51 Year
  Sex: Female
  Weight: 72.58 kg

DRUGS (3)
  1. CIPRO [Suspect]
     Active Substance: CIPROFLOXACIN HYDROCHLORIDE
     Indication: PNEUMONIA ASPIRATION
     Route: 042
     Dates: start: 20140409, end: 20140410
  2. LEVAQUIN [Suspect]
     Active Substance: LEVOFLOXACIN
     Indication: PNEUMONIA ASPIRATION
     Route: 048
  3. SYNTHROID [Concomitant]
     Active Substance: LEVOTHYROXINE SODIUM

REACTIONS (21)
  - Fatigue [None]
  - Paraesthesia [None]
  - Polyuria [None]
  - Insomnia [None]
  - Erythema [None]
  - Weight increased [None]
  - Dysarthria [None]
  - Muscle twitching [None]
  - Burning sensation [None]
  - Nerve injury [None]
  - Vision blurred [None]
  - Dry eye [None]
  - Feeling abnormal [None]
  - Headache [None]
  - Irritability [None]
  - Pain [None]
  - Dizziness [None]
  - Memory impairment [None]
  - Restlessness [None]
  - Hypoaesthesia [None]
  - Anxiety [None]

NARRATIVE: CASE EVENT DATE: 20140409
